FAERS Safety Report 15965080 (Version 1)
Quarter: 2019Q1

REPORT INFORMATION
  Report Type: Spontaneous
  Country: US (occurrence: US)
  Receive Date: 20190215
  Receipt Date: 20190215
  Transmission Date: 20190418
  Serious: No
  Sender: FDA-Public Use
  Company Number: US-AMGEN-USASP2019020131

PATIENT
  Age: 72 Year
  Sex: Female

DRUGS (1)
  1. PROLIA [Suspect]
     Active Substance: DENOSUMAB
     Indication: OSTEOPOROSIS POSTMENOPAUSAL
     Dosage: 60 MG, Q6MO
     Route: 065
     Dates: start: 201801

REACTIONS (9)
  - Malaise [Unknown]
  - Anxiety [Unknown]
  - Lack of injection site rotation [Unknown]
  - Sensitivity of teeth [Unknown]
  - Depressed mood [Unknown]
  - Tooth disorder [Unknown]
  - Injection site pain [Unknown]
  - Dry skin [Unknown]
  - Pruritus [Unknown]
